FAERS Safety Report 9517414 (Version 2)
Quarter: 2014Q1

REPORT INFORMATION
  Report Type: Spontaneous
  Country: US (occurrence: None)
  Receive Date: 20130305
  Receipt Date: 20140306
  Transmission Date: 20141002
  Serious: Yes (Other)
  Sender: FDA-Public Use
  Company Number: 163-21880-12040926

PATIENT
  Age: 65 Year
  Sex: Female

DRUGS (7)
  1. REVLIMID [Suspect]
     Indication: PLASMA CELL MYELOMA
     Route: 048
     Dates: start: 201103
  2. GAMMA GLOBULIN (IMMUNOGLOBULIN HUMAN NORMAL) (UNKNOWN) [Concomitant]
  3. DIFLUCAN [Suspect]
  4. ZOMETA (ZOLEDRONIC ACID) [Concomitant]
  5. MAGNESIUM [Concomitant]
  6. CALCIUM [Concomitant]
  7. VITAMIN D [Concomitant]

REACTIONS (14)
  - Diarrhoea [None]
  - Fatigue [None]
  - Headache [None]
  - Platelet count decreased [None]
  - Contusion [None]
  - Mouth ulceration [None]
  - Dyspnoea [None]
  - Hypertension [None]
  - Pain [None]
  - Rash [None]
  - Sinusitis [None]
  - Nasopharyngitis [None]
  - Cough [None]
  - Hypophosphataemia [None]
